FAERS Safety Report 20586771 (Version 1)
Quarter: 2022Q1

REPORT INFORMATION
  Report Type: Spontaneous
  Country: IN (occurrence: IN)
  Receive Date: 20220313
  Receipt Date: 20220313
  Transmission Date: 20220423
  Serious: Yes (Other)
  Sender: FDA-Public Use
  Company Number: IN-SUN PHARMACEUTICAL INDUSTRIES LTD-2020R1-232849

PATIENT
  Age: 32 Year
  Sex: Female

DRUGS (11)
  1. RANITIDINE [Suspect]
     Active Substance: RANITIDINE
     Indication: Respiratory disorder prophylaxis
     Dosage: UNK (15 MG)
     Route: 042
  2. FENTANYL [Suspect]
     Active Substance: FENTANYL
     Indication: Anaesthesia
     Dosage: UNK (1 MICROG/ML)
     Route: 008
  3. FENTANYL [Suspect]
     Active Substance: FENTANYL
     Dosage: UNK (50 MICROGRAM)
     Route: 042
  4. METOCLOPRAMIDE [Suspect]
     Active Substance: METOCLOPRAMIDE
     Indication: Respiratory disorder prophylaxis
     Dosage: UNK (10 MG)
     Route: 042
  5. BUPIVACAINE [Suspect]
     Active Substance: BUPIVACAINE
     Indication: Anaesthesia
     Dosage: UNK (0.5%)
     Route: 008
  6. ESMOLOL [Suspect]
     Active Substance: ESMOLOL HYDROCHLORIDE
     Indication: Anaesthesia
     Dosage: UNK (20 MG)
     Route: 065
  7. LIDOCAINE [Suspect]
     Active Substance: LIDOCAINE
     Indication: Anaesthesia
     Dosage: UNK (2ML OF 2%)
     Route: 008
  8. LIDOCAINE [Suspect]
     Active Substance: LIDOCAINE
     Dosage: UNK (5 ML OF 2%)
     Route: 008
  9. SEVOFLURANE [Suspect]
     Active Substance: SEVOFLURANE
     Indication: Anaesthesia
     Dosage: UNK
     Route: 065
  10. THIOPENTAL SODIUM [Suspect]
     Active Substance: THIOPENTAL SODIUM
     Dosage: UNK (200 MG)
     Route: 065
  11. SUCCINYLCHOLINE [Suspect]
     Active Substance: SUCCINYLCHOLINE
     Indication: Anaesthesia
     Dosage: UNK (75 MG)
     Route: 065

REACTIONS (2)
  - Exposure during pregnancy [Unknown]
  - Therapy partial responder [Unknown]
